FAERS Safety Report 21434592 (Version 9)
Quarter: 2023Q2

REPORT INFORMATION
  Report Type: Report from Study
  Country: US (occurrence: US)
  Receive Date: 20221010
  Receipt Date: 20230609
  Transmission Date: 20230722
  Serious: No
  Sender: FDA-Public Use
  Company Number: US-NOVARTISTESTPH-NVSC2022US228365

PATIENT
  Age: 62 Year
  Sex: Female

DRUGS (1)
  1. KESIMPTA [Suspect]
     Active Substance: OFATUMUMAB
     Indication: Relapsing multiple sclerosis
     Dosage: 20 MG, QMO
     Route: 058
     Dates: start: 20220923

REACTIONS (10)
  - Feeling cold [Unknown]
  - Glycosylated haemoglobin increased [Unknown]
  - Hypoaesthesia [Unknown]
  - Tendonitis [Unknown]
  - Fall [Unknown]
  - Contusion [Unknown]
  - Feeling abnormal [Unknown]
  - Sensitivity to weather change [Unknown]
  - Carpal tunnel syndrome [Unknown]
  - Tendon pain [Unknown]

NARRATIVE: CASE EVENT DATE: 20221007
